FAERS Safety Report 8620797-4 (Version None)
Quarter: 2012Q3

REPORT INFORMATION
  Report Type: 
  Country: None (occurrence: None)
  Receive Date: 20120824
  Receipt Date: 20120814
  Transmission Date: 20120928
  Serious: Yes (Other)
  Sender: FDA-Public Use
  Company Number: ES-ELI_LILLY_AND_COMPANY-ES201204008281

PATIENT
  Sex: Female
  Weight: 107 kg

DRUGS (1)
  1. FORTEO [Suspect]
     Indication: FRACTURE
     Dosage: UNK
     Dates: start: 20110921, end: 20120718

REACTIONS (4)
  - OFF LABEL USE [None]
  - MEDICAL DEVICE REMOVAL [None]
  - PAIN [None]
  - CREPITATIONS [None]
